FAERS Safety Report 10548203 (Version 2)
Quarter: 2014Q4

REPORT INFORMATION
  Report Type: Spontaneous
  Country: US (occurrence: US)
  Receive Date: 20141028
  Receipt Date: 20141111
  Transmission Date: 20150529
  Serious: No
  Sender: FDA-Public Use
  Company Number: US-LEO PHARMA-230265

PATIENT
  Age: 62 Year
  Sex: Male

DRUGS (1)
  1. PICATO [Suspect]
     Active Substance: INGENOL MEBUTATE
     Indication: ACTINIC KERATOSIS
     Route: 061
     Dates: start: 20141005, end: 20141007

REACTIONS (7)
  - Inappropriate schedule of drug administration [Unknown]
  - Application site scab [Recovered/Resolved]
  - Eye pain [Not Recovered/Not Resolved]
  - Eye swelling [Not Recovered/Not Resolved]
  - Eyelid ptosis [Recovered/Resolved]
  - Eyelid oedema [Recovered/Resolved]
  - Accidental exposure to product [Unknown]

NARRATIVE: CASE EVENT DATE: 20141009
